FAERS Safety Report 18429796 (Version 3)
Quarter: 2020Q4

REPORT INFORMATION
  Report Type: Report from Study
  Country: BE (occurrence: BE)
  Receive Date: 20201027
  Receipt Date: 20201224
  Transmission Date: 20210114
  Serious: Yes (Hospitalization)
  Sender: FDA-Public Use
  Company Number: BE-ROCHE-2702797

PATIENT
  Age: 76 Year
  Sex: Male
  Weight: 123.1 kg

DRUGS (2)
  1. LENALIDOMIDE [Suspect]
     Active Substance: LENALIDOMIDE
     Indication: MANTLE CELL LYMPHOMA
     Route: 065
     Dates: start: 20190228, end: 20190913
  2. RITUXIMAB. [Suspect]
     Active Substance: RITUXIMAB
     Indication: MANTLE CELL LYMPHOMA
     Dosage: ON 23/OCT/2020, HE RECEIVED MOST RECENT DOSE.
     Route: 058
     Dates: start: 20190228

REACTIONS (1)
  - Right ventricular failure [Recovered/Resolved]

NARRATIVE: CASE EVENT DATE: 20201023
